FAERS Safety Report 4672614-5 (Version None)
Quarter: 2005Q2

REPORT INFORMATION
  Report Type: 
  Country: None (occurrence: None)
  Receive Date: 20050524
  Receipt Date: 20050512
  Transmission Date: 20051028
  Serious: Yes (Hospitalization)
  Sender: FDA-Public Use
  Company Number: FR-SANOFI-SYNTHELABO-A02200501293

PATIENT
  Age: 68 Year
  Sex: Female
  Weight: 57 kg

DRUGS (2)
  1. ELOXATIN [Suspect]
     Indication: OVARIAN CANCER
     Route: 042
     Dates: start: 20040622, end: 20040622
  2. GEMZAR [Suspect]
     Indication: OVARIAN CANCER
     Route: 042
     Dates: start: 20040621, end: 20040621

REACTIONS (9)
  - ABNORMAL BEHAVIOUR [None]
  - ANGIONEUROTIC OEDEMA [None]
  - APHASIA [None]
  - CEREBRAL HAEMATOMA [None]
  - CEREBRAL VENOUS THROMBOSIS [None]
  - CONFUSIONAL STATE [None]
  - GRAND MAL CONVULSION [None]
  - HEMIPARESIS [None]
  - VOMITING [None]
